FAERS Safety Report 11756281 (Version 2)
Quarter: 2015Q4

REPORT INFORMATION
  Report Type: Spontaneous
  Country: US (occurrence: US)
  Receive Date: 20151119
  Receipt Date: 20151207
  Transmission Date: 20160304
  Serious: No
  Sender: FDA-Public Use
  Company Number: US-TAKEDA-2015TUS015794

PATIENT
  Age: 41 Year
  Sex: Male
  Weight: 91 kg

DRUGS (7)
  1. ENTYVIO [Suspect]
     Active Substance: VEDOLIZUMAB
     Indication: CROHN^S DISEASE
     Dosage: 300 MG, UNK
     Route: 042
     Dates: start: 20151006
  2. LABETALOL [Concomitant]
     Active Substance: LABETALOL\LABETALOL HYDROCHLORIDE
     Indication: BLOOD PRESSURE MANAGEMENT
     Dosage: 100 MG, UNK
     Dates: start: 20150701
  3. INVANZ [Concomitant]
     Active Substance: ERTAPENEM SODIUM
     Indication: INFECTION
  4. COUMADIN [Concomitant]
     Active Substance: WARFARIN SODIUM
     Indication: COAGULOPATHY
     Dosage: 60 MG, UNK
     Dates: start: 201507
  5. SYNTHROID [Concomitant]
     Active Substance: LEVOTHYROXINE SODIUM
     Dosage: 0.07 ?G, UNK
     Dates: start: 20141001
  6. LISINOPRIL. [Concomitant]
     Active Substance: LISINOPRIL
     Indication: BLOOD PRESSURE MANAGEMENT
     Dosage: 10 MG, UNK
     Dates: start: 201410
  7. INVANZ [Concomitant]
     Active Substance: ERTAPENEM SODIUM
     Indication: ABSCESS
     Dosage: UNK
     Route: 042
     Dates: start: 201509

REACTIONS (1)
  - Infusion site rash [Not Recovered/Not Resolved]

NARRATIVE: CASE EVENT DATE: 20151024
